FAERS Safety Report 22949527 (Version 8)
Quarter: 2023Q4

REPORT INFORMATION
  Report Type: Spontaneous
  Country: US (occurrence: US)
  Receive Date: 20230915
  Receipt Date: 20231211
  Transmission Date: 20240109
  Serious: No
  Sender: FDA-Public Use
  Company Number: US-PFIZER INC-202300286698

PATIENT
  Age: 13 Year
  Sex: Female
  Weight: 37.65 kg

DRUGS (2)
  1. GENOTROPIN [Suspect]
     Active Substance: SOMATROPIN
     Indication: Turner^s syndrome
     Dosage: 2 MG, DAILY (ALTERNATING)
     Dates: start: 20230320
  2. GENOTROPIN [Suspect]
     Active Substance: SOMATROPIN
     Dosage: 2.2 MG, DAILY (ALTERNATING)
     Dates: start: 20230320

REACTIONS (4)
  - Liquid product physical issue [Unknown]
  - Product packaging quantity issue [Unknown]
  - Device leakage [Unknown]
  - Product outer packaging issue [Unknown]

NARRATIVE: CASE EVENT DATE: 20230101
